FAERS Safety Report 5235423-4 (Version None)
Quarter: 2007Q1

REPORT INFORMATION
  Report Type: 
  Country: None (occurrence: None)
  Receive Date: 20070212
  Receipt Date: 20070206
  Transmission Date: 20070707
  Serious: Yes (Hospitalization, Other)
  Sender: FDA-Public Use
  Company Number: FR-BRISTOL-MYERS SQUIBB COMPANY-13670807

PATIENT
  Age: 63 Year
  Sex: Male

DRUGS (4)
  1. IRBESARTAN [Suspect]
     Indication: CARDIAC FAILURE
     Route: 048
     Dates: start: 20040415
  2. BLINDED: PLACEBO [Suspect]
     Indication: CARDIAC FAILURE
     Route: 048
     Dates: start: 20040415
  3. FOZITEC [Concomitant]
     Dates: start: 20040415
  4. FUROSEMIDE [Concomitant]
     Dates: start: 20040415

REACTIONS (2)
  - GASTROENTERITIS [None]
  - RENAL FAILURE [None]
